FAERS Safety Report 17070884 (Version 1)
Quarter: 2019Q4

REPORT INFORMATION
  Report Type: Spontaneous
  Country: GB (occurrence: GB)
  Receive Date: 20191125
  Receipt Date: 20191125
  Transmission Date: 20200122
  Serious: Yes (Other)
  Sender: FDA-Public Use
  Company Number: GB-PFIZER INC-2019502479

PATIENT
  Sex: Male

DRUGS (1)
  1. FELDENE [Suspect]
     Active Substance: PIROXICAM
     Indication: ARTHRALGIA
     Dosage: UNK
     Route: 061

REACTIONS (2)
  - Gastrointestinal carcinoma [Unknown]
  - Hepatic cancer metastatic [Unknown]
